FAERS Safety Report 5502964-1 (Version None)
Quarter: 2007Q4

REPORT INFORMATION
  Report Type: 
  Country: None (occurrence: None)
  Receive Date: 20071029
  Receipt Date: 20071029
  Transmission Date: 20080405
  Serious: Yes (Other)
  Sender: FDA-Public Use
  Company Number: None

PATIENT
  Age: 47 Year
  Sex: Female
  Weight: 118.8424 kg

DRUGS (2)
  1. ARMSTRONG   2 PUFFS   ARMSTRONG ALBUTEROL [Suspect]
     Indication: ASTHMA
     Dosage: 2 PFS EVERY 4 HRS/BUT I USE    4 PUFFS EVERY 2  TO
     Dates: start: 20070702, end: 20071027
  2. ARMSTRONG   2 PUFFS   ARMSTRONG ALBUTEROL [Suspect]
     Indication: CHRONIC OBSTRUCTIVE PULMONARY DISEASE
     Dosage: 2 PFS EVERY 4 HRS/BUT I USE    4 PUFFS EVERY 2  TO
     Dates: start: 20070702, end: 20071027

REACTIONS (5)
  - BLOOD PRESSURE INCREASED [None]
  - CHEST PAIN [None]
  - DRUG INEFFECTIVE [None]
  - MALAISE [None]
  - PHARMACEUTICAL PRODUCT COMPLAINT [None]
